FAERS Safety Report 25661018 (Version 3)
Quarter: 2025Q3

REPORT INFORMATION
  Report Type: Spontaneous
  Country: JP (occurrence: JP)
  Receive Date: 20250808
  Receipt Date: 20250826
  Transmission Date: 20251020
  Serious: Yes (Hospitalization)
  Sender: ALEXION PHARMACEUTICALS
  Company Number: JP-ASTRAZENECA-202508JPN001676JP

PATIENT
  Age: 78 Year
  Sex: Female
  Weight: 38.8 kg

DRUGS (11)
  1. TRUQAP [Suspect]
     Active Substance: CAPIVASERTIB
     Indication: Breast cancer female
     Dosage: 160 MILLIGRAM, BID
     Dates: start: 20250518, end: 20250526
  2. DAPAGLIFLOZIN [Suspect]
     Active Substance: DAPAGLIFLOZIN
     Indication: Product used for unknown indication
     Route: 065
  3. FASLODEX [Suspect]
     Active Substance: FULVESTRANT
     Indication: Breast cancer female
  4. FASLODEX [Suspect]
     Active Substance: FULVESTRANT
  5. LOPERAMIDE [Concomitant]
     Active Substance: LOPERAMIDE
  6. EDOXABAN TOSYLATE [Concomitant]
     Active Substance: EDOXABAN TOSYLATE
  7. SODIUM FERROUS CITRATE [Concomitant]
     Active Substance: SODIUM FERROUS CITRATE
  8. SPIRONOLACTONE [Concomitant]
     Active Substance: SPIRONOLACTONE
  9. BISOPROLOL [Concomitant]
     Active Substance: BISOPROLOL
  10. AZOSEMIDE [Concomitant]
     Active Substance: AZOSEMIDE
  11. BREZTRI [Suspect]
     Active Substance: BUDESONIDE\FORMOTEROL\GLYCOPYRROLATE
     Indication: Product used for unknown indication
     Route: 065

REACTIONS (19)
  - Erythema multiforme [Recovering/Resolving]
  - Oral disorder [Recovering/Resolving]
  - Renal disorder [Recovering/Resolving]
  - Hyperglycaemia [Recovering/Resolving]
  - Dizziness [Unknown]
  - Fall [Unknown]
  - Contusion [Unknown]
  - Hyponatraemia [Unknown]
  - Acute kidney injury [Unknown]
  - Pyrexia [Recovering/Resolving]
  - Lung infiltration [Unknown]
  - Anaemia [Recovering/Resolving]
  - Lip dry [Unknown]
  - Insomnia [Unknown]
  - Weight increased [Unknown]
  - Haemorrhage subcutaneous [Unknown]
  - Rash [Recovering/Resolving]
  - Stomatitis [Recovering/Resolving]
  - Dehydration [Unknown]

NARRATIVE: CASE EVENT DATE: 20250519
